FAERS Safety Report 18554417 (Version 2)
Quarter: 2020Q4

REPORT INFORMATION
  Report Type: Spontaneous
  Country: RU (occurrence: RU)
  Receive Date: 20201127
  Receipt Date: 20201223
  Transmission Date: 20210114
  Serious: Yes (Other)
  Sender: FDA-Public Use
  Company Number: NVSC2020RU309706

PATIENT
  Age: 80 Year
  Sex: Female

DRUGS (4)
  1. ATORVASTATIN [Concomitant]
     Active Substance: ATORVASTATIN
     Indication: PRODUCT USED FOR UNKNOWN INDICATION
     Route: 065
  2. INDAPAMIDE. [Concomitant]
     Active Substance: INDAPAMIDE
     Indication: PRODUCT USED FOR UNKNOWN INDICATION
     Route: 065
  3. ENALAPRIL ^HEXAL^ [Suspect]
     Active Substance: ENALAPRIL MALEATE
     Indication: HYPERTENSION
     Dosage: 5 MG, BID,  WITH MISSED DOSE
     Route: 048
     Dates: start: 20201106, end: 20201109
  4. ENALAPRIL ^HEXAL^ [Suspect]
     Active Substance: ENALAPRIL MALEATE
     Dosage: 10 MG, BID  WITH MISSED DOSE
     Route: 048
     Dates: start: 20201106, end: 20201109

REACTIONS (6)
  - Heart rate decreased [Recovering/Resolving]
  - Headache [Recovering/Resolving]
  - Blood pressure increased [Recovering/Resolving]
  - Product administration error [Unknown]
  - Asthenia [Recovering/Resolving]
  - Product dose omission issue [Unknown]

NARRATIVE: CASE EVENT DATE: 20201109
